FAERS Safety Report 20487209 (Version 1)
Quarter: 2022Q1

REPORT INFORMATION
  Report Type: Report from Study
  Country: BR (occurrence: BR)
  Receive Date: 20220217
  Receipt Date: 20220217
  Transmission Date: 20220423
  Serious: Yes (Other)
  Sender: FDA-Public Use
  Company Number: BR-ABBVIE-22K-020-4281375-00

PATIENT
  Sex: Female

DRUGS (1)
  1. RINVOQ [Suspect]
     Active Substance: UPADACITINIB
     Indication: Rheumatoid arthritis
     Route: 048
     Dates: start: 20211008

REACTIONS (5)
  - Haemorrhoids thrombosed [Unknown]
  - Haematochezia [Unknown]
  - Anal fissure [Unknown]
  - Constipation [Unknown]
  - Post procedural complication [Unknown]
